FAERS Safety Report 17162774 (Version 1)
Quarter: 2019Q4

REPORT INFORMATION
  Report Type: Spontaneous
  Country: US (occurrence: US)
  Receive Date: 20191217
  Receipt Date: 20191217
  Transmission Date: 20200122
  Serious: No
  Sender: FDA-Public Use
  Company Number: US-ASTRAZENECA-2019SF68611

PATIENT
  Sex: Female

DRUGS (2)
  1. LYNPARZA [Suspect]
     Active Substance: OLAPARIB
     Route: 048
  2. TRULICITY [Concomitant]
     Active Substance: DULAGLUTIDE

REACTIONS (6)
  - Vision blurred [Not Recovered/Not Resolved]
  - Vitreous floaters [Not Recovered/Not Resolved]
  - Visual impairment [Not Recovered/Not Resolved]
  - Blood glucose abnormal [Unknown]
  - Abdominal pain upper [Not Recovered/Not Resolved]
  - Product use issue [Not Recovered/Not Resolved]
